FAERS Safety Report 21636295 (Version 1)
Quarter: 2022Q4

REPORT INFORMATION
  Report Type: Spontaneous
  Country: CN (occurrence: None)
  Receive Date: 20221124
  Receipt Date: 20221124
  Transmission Date: 20230112
  Serious: Yes (Other)
  Sender: FDA-Public Use
  Company Number: CN-ROCHE-3223304

PATIENT
  Age: 56 Year
  Sex: Male
  Weight: 70 kg

DRUGS (5)
  1. MABTHERA [Suspect]
     Active Substance: RITUXIMAB
     Indication: Abdominal lymphadenopathy
     Route: 041
     Dates: start: 20221111
  2. CYCLOPHOSPHAMIDE [Suspect]
     Active Substance: CYCLOPHOSPHAMIDE
     Indication: Abdominal lymphadenopathy
     Route: 041
     Dates: start: 20221111
  3. EPIRUBICIN HYDROCHLORIDE [Suspect]
     Active Substance: EPIRUBICIN HYDROCHLORIDE
     Indication: Abdominal lymphadenopathy
     Route: 041
     Dates: start: 20221111
  4. VINDESINE SULFATE [Suspect]
     Active Substance: VINDESINE SULFATE
     Indication: Abdominal lymphadenopathy
     Route: 041
     Dates: start: 20221111
  5. PREDNISONE [Concomitant]
     Active Substance: PREDNISONE
     Indication: Abdominal lymphadenopathy
     Route: 048
     Dates: start: 20221111

REACTIONS (2)
  - Myelosuppression [Unknown]
  - Off label use [Unknown]

NARRATIVE: CASE EVENT DATE: 20221116
